FAERS Safety Report 6268773-3 (Version None)
Quarter: 2009Q3

REPORT INFORMATION
  Report Type: 
  Country: None (occurrence: None)
  Receive Date: 20090714
  Receipt Date: 20090714
  Transmission Date: 20100115
  Serious: Yes (Other)
  Sender: FDA-Public Use
  Company Number: None

PATIENT
  Age: 39 Year
  Sex: Male
  Weight: 99.7913 kg

DRUGS (1)
  1. CHANTIX [Suspect]
     Indication: SMOKING CESSATION THERAPY
     Dosage: 2 X 1MG DAILY PO
     Route: 048
     Dates: start: 20090503, end: 20090618

REACTIONS (2)
  - DRUG DOSE OMISSION [None]
  - MOOD SWINGS [None]
